FAERS Safety Report 4299165-4 (Version None)
Quarter: 2004Q1

REPORT INFORMATION
  Report Type: 
  Country: None (occurrence: None)
  Receive Date: 20040217
  Receipt Date: 20040209
  Transmission Date: 20041129
  Serious: Yes (Hospitalization)
  Sender: FDA-Public Use
  Company Number: TPA2002A00795

PATIENT
  Age: 63 Year
  Sex: Female
  Weight: 104.3273 kg

DRUGS (5)
  1. ACTOS [Suspect]
     Indication: DIABETES MELLITUS NON-INSULIN-DEPENDENT
     Dosage: 30 MG, 1 IN 1 D, PER ORAL
     Route: 048
     Dates: start: 20010209, end: 20040205
  2. GLYBURIDE [Concomitant]
  3. LIPITOR [Concomitant]
  4. ZESTRIL [Concomitant]
  5. TICLID [Concomitant]

REACTIONS (12)
  - ASTHENIA [None]
  - BIOPSY UTERUS ABNORMAL [None]
  - BLOOD GLUCOSE INCREASED [None]
  - BLOOD POTASSIUM INCREASED [None]
  - BLOOD PRESSURE SYSTOLIC DECREASED [None]
  - CYSTITIS [None]
  - DIARRHOEA [None]
  - DYSGEUSIA [None]
  - FEELING ABNORMAL [None]
  - METRORRHAGIA [None]
  - OLIGURIA [None]
  - WEIGHT DECREASED [None]
